FAERS Safety Report 7571213-5 (Version None)
Quarter: 2011Q2

REPORT INFORMATION
  Report Type: 
  Country: None (occurrence: None)
  Receive Date: 20110624
  Receipt Date: 20110607
  Transmission Date: 20111010
  Serious: Yes (Hospitalization)
  Sender: FDA-Public Use
  Company Number: A0886513A

PATIENT
  Age: 58 Year
  Sex: Male
  Weight: 97.7 kg

DRUGS (2)
  1. AVANDIA [Suspect]
     Indication: DIABETES MELLITUS
     Route: 048
     Dates: start: 20060305, end: 20070801
  2. AVANDAMET [Suspect]
     Indication: DIABETES MELLITUS
     Route: 048
     Dates: start: 20050720, end: 20060305

REACTIONS (9)
  - CORONARY ARTERY STENOSIS [None]
  - CORONARY ARTERY DISEASE [None]
  - MYOCARDIAL ISCHAEMIA [None]
  - SUPRAVENTRICULAR TACHYCARDIA [None]
  - CARDIOVASCULAR DISORDER [None]
  - PERIPHERAL VASCULAR DISORDER [None]
  - INJURY [None]
  - ARTERIOSCLEROSIS CORONARY ARTERY [None]
  - PERIPHERAL ARTERIAL OCCLUSIVE DISEASE [None]
